FAERS Safety Report 24680435 (Version 2)
Quarter: 2025Q1

REPORT INFORMATION
  Report Type: Spontaneous
  Country: CA (occurrence: CA)
  Receive Date: 20241129
  Receipt Date: 20250127
  Transmission Date: 20250409
  Serious: Yes (Other)
  Sender: PFIZER
  Company Number: CA-PFIZER INC-202300310920

PATIENT
  Age: 57 Year

DRUGS (3)
  1. ABRILADA [Suspect]
     Active Substance: ADALIMUMAB-AFZB
     Indication: Birdshot chorioretinopathy
     Route: 058
     Dates: start: 20240221, end: 2024
  2. ABRILADA [Suspect]
     Active Substance: ADALIMUMAB-AFZB
     Indication: Retinopathy
  3. METHOTREXATE [Concomitant]
     Active Substance: METHOTREXATE
     Indication: Retinopathy
     Route: 065

REACTIONS (2)
  - Dedifferentiated liposarcoma [Unknown]
  - Off label use [Unknown]

NARRATIVE: CASE EVENT DATE: 20240101
